FAERS Safety Report 18812234 (Version 1)
Quarter: 2021Q1

REPORT INFORMATION
  Report Type: Spontaneous
  Country: CA (occurrence: CA)
  Receive Date: 20210129
  Receipt Date: 20210129
  Transmission Date: 20210419
  Serious: Yes (Life-Threatening, Hospitalization, Other)
  Sender: FDA-Public Use
  Company Number: CA-TEVA-2021-CA-1872921

PATIENT
  Age: 84 Year
  Sex: Female

DRUGS (13)
  1. FRAGMIN [Concomitant]
     Active Substance: DALTEPARIN SODIUM
     Dosage: SOLUTION INTRAVENOUS
  2. TRIAMCINOLONE [Concomitant]
     Active Substance: TRIAMCINOLONE
  3. DIGOXIN. [Concomitant]
     Active Substance: DIGOXIN
  4. TRIAZIDE [Concomitant]
  5. ALLOPURINOL. [Concomitant]
     Active Substance: ALLOPURINOL
  6. LORAZEPAM. [Concomitant]
     Active Substance: LORAZEPAM
  7. METFORMIN [Concomitant]
     Active Substance: METFORMIN HYDROCHLORIDE
  8. TELMISARTAN. [Concomitant]
     Active Substance: TELMISARTAN
  9. ATORVASTATIN [Concomitant]
     Active Substance: ATORVASTATIN
  10. FUROSEMIDE. [Concomitant]
     Active Substance: FUROSEMIDE
  11. SULFAMETHOXAZOLE AND TRIMETHOPRIM [Suspect]
     Active Substance: SULFAMETHOXAZOLE\TRIMETHOPRIM
     Indication: CELLULITIS
  12. SULFAMETHOXAZOLE AND TRIMETHOPRIM [Suspect]
     Active Substance: SULFAMETHOXAZOLE\TRIMETHOPRIM
     Indication: STAPHYLOCOCCAL INFECTION
     Dosage: 4 DOSAGE FORMS DAILY;
     Route: 048
  13. WARFARIN [Concomitant]
     Active Substance: WARFARIN

REACTIONS (11)
  - Nephritis [Recovered/Resolved]
  - Glomerular filtration rate decreased [Recovered/Resolved]
  - Lethargy [Recovered/Resolved]
  - Nausea [Recovered/Resolved]
  - Blood potassium abnormal [Recovered/Resolved]
  - Acute kidney injury [Recovered/Resolved]
  - International normalised ratio increased [Recovered/Resolved]
  - Asthenia [Recovered/Resolved]
  - Diarrhoea [Recovered/Resolved]
  - Vomiting [Recovered/Resolved]
  - Anaemia [Recovered/Resolved]
